FAERS Safety Report 22226304 (Version 1)
Quarter: 2023Q2

REPORT INFORMATION
  Report Type: Spontaneous
  Country: FR (occurrence: None)
  Receive Date: 20230419
  Receipt Date: 20230419
  Transmission Date: 20230721
  Serious: Yes (Hospitalization)
  Sender: FDA-Public Use
  Company Number: FR-Orion Corporation ORION PHARMA-TREX2023-0115

PATIENT
  Age: 34 Year
  Sex: Male

DRUGS (5)
  1. METHOTREXATE [Suspect]
     Active Substance: METHOTREXATE
     Indication: Pulmonary sarcoidosis
     Dosage: CUMULATIVE TOTAL DOSE: 150 MG
     Dates: start: 20230306, end: 20230315
  2. SOLUPRED [Concomitant]
     Dosage: IN THE MORNING?STRENGTH: 0.5 MG/KG
     Dates: start: 20221221
  3. ESOMEPRAZOLE [Concomitant]
     Active Substance: ESOMEPRAZOLE
     Dosage: 0-0-1
  4. ANORO ELLIPTA [Concomitant]
     Active Substance: UMECLIDINIUM BROMIDE\VILANTEROL TRIFENATATE
     Dosage: 1 PUFF IN MORNING
  5. ALBUTEROL [Concomitant]
     Active Substance: ALBUTEROL
     Dosage: STRENGTH: 100 MICROGRAMS?2 AS NECESSARY 2 PUFFS IF NEEDED

REACTIONS (12)
  - Thrombocytopenia [Recovered/Resolved]
  - Mucosal inflammation [Recovering/Resolving]
  - Normocytic anaemia [Recovering/Resolving]
  - Haemoptysis [Recovered/Resolved]
  - Rash pruritic [Recovering/Resolving]
  - Product communication issue [Unknown]
  - Inappropriate schedule of product administration [Recovered/Resolved]
  - Accidental overdose [Recovered/Resolved]
  - Product use in unapproved indication [Unknown]
  - Asthenia [Recovering/Resolving]
  - Epistaxis [Recovered/Resolved]
  - Diarrhoea [Recovered/Resolved]

NARRATIVE: CASE EVENT DATE: 20230306
